FAERS Safety Report 8560301-2 (Version None)
Quarter: 2012Q3

REPORT INFORMATION
  Report Type: 
  Country: None (occurrence: None)
  Receive Date: 20120802
  Receipt Date: 20120719
  Transmission Date: 20120928
  Serious: Yes (Other)
  Sender: FDA-Public Use
  Company Number: US-ELI_LILLY_AND_COMPANY-US201207006893

PATIENT
  Sex: Female

DRUGS (7)
  1. HUMALOG [Suspect]
     Indication: GESTATIONAL DIABETES
     Dosage: UNK
  2. HUMULIN R [Suspect]
     Dosage: 20 U, EACH EVENING
     Dates: start: 20120201
  3. PRENATAL VITAMINS                  /01549301/ [Concomitant]
     Dosage: UNK
     Dates: start: 20120201
  4. HUMULIN N [Suspect]
     Dosage: 16 U, EACH EVENING
     Dates: start: 20120201
  5. PROZAC [Suspect]
     Dosage: UNK
     Dates: start: 20100101
  6. HUMULIN R [Suspect]
     Indication: GESTATIONAL DIABETES
     Dosage: 16 U, EACH MORNING
     Dates: start: 20120201
  7. HUMULIN N [Suspect]
     Indication: GESTATIONAL DIABETES
     Dosage: 32 U, EACH MORNING
     Dates: start: 20120201

REACTIONS (3)
  - MATERNAL EXPOSURE DURING PREGNANCY [None]
  - GESTATIONAL DIABETES [None]
  - PREMATURE LABOUR [None]
